FAERS Safety Report 5358323-8 (Version None)
Quarter: 2007Q2

REPORT INFORMATION
  Report Type: 
  Country: None (occurrence: None)
  Receive Date: 20070614
  Receipt Date: 20070614
  Transmission Date: 20071010
  Serious: Yes (Hospitalization)
  Sender: FDA-Public Use
  Company Number: None

PATIENT
  Age: 65 Year
  Sex: Male

DRUGS (1)
  1. DILTIAZEM [Suspect]
     Indication: ATRIAL FIBRILLATION
     Dosage: 90MG QID PO
     Route: 048
     Dates: start: 20070518, end: 20070520

REACTIONS (8)
  - DYSPNOEA AT REST [None]
  - FLUID OVERLOAD [None]
  - HEART RATE DECREASED [None]
  - HEART RATE INCREASED [None]
  - HYPERTENSION [None]
  - OEDEMA PERIPHERAL [None]
  - TACHYPNOEA [None]
  - WEIGHT INCREASED [None]
